FAERS Safety Report 9191457 (Version 1)
Quarter: 2013Q1

REPORT INFORMATION
  Report Type: Spontaneous
  Country: GB (occurrence: GB)
  Receive Date: 20130326
  Receipt Date: 20130326
  Transmission Date: 20140127
  Serious: Yes (Other)
  Sender: FDA-Public Use
  Company Number: GB-TEVA-393117ISR

PATIENT
  Age: 26 Year
  Sex: Female

DRUGS (14)
  1. QUETIAPINE [Suspect]
     Indication: BIPOLAR DISORDER
     Route: 048
  2. QUETIAPINE [Suspect]
     Indication: PSYCHOTIC DISORDER
     Route: 048
  3. QUETIAPINE [Suspect]
     Dosage: 400 MILLIGRAM DAILY;
     Route: 048
     Dates: start: 200802, end: 200806
  4. QUETIAPINE [Suspect]
     Dosage: 400 MILLIGRAM DAILY;
     Route: 048
     Dates: start: 200802, end: 200806
  5. QUETIAPINE [Suspect]
     Route: 048
     Dates: start: 200806, end: 200809
  6. QUETIAPINE [Suspect]
     Route: 048
     Dates: start: 200806, end: 200809
  7. QUETIAPINE [Suspect]
     Dosage: 100MG + 300MG
     Route: 048
     Dates: start: 200809, end: 200810
  8. QUETIAPINE [Suspect]
     Dosage: 100MG + 300MG
     Route: 048
     Dates: start: 200809, end: 200810
  9. QUETIAPINE [Suspect]
     Dosage: 300 MILLIGRAM DAILY;
     Route: 048
     Dates: start: 200810, end: 200901
  10. QUETIAPINE [Suspect]
     Dosage: 300 MILLIGRAM DAILY;
     Route: 048
     Dates: start: 200810, end: 200901
  11. QUETIAPINE [Suspect]
     Dosage: 300 MILLIGRAM DAILY;
     Route: 048
     Dates: start: 200901
  12. QUETIAPINE [Suspect]
     Dosage: 300 MILLIGRAM DAILY;
     Route: 048
     Dates: start: 200901
  13. DEPAKOTE [Concomitant]
     Indication: BIPOLAR DISORDER
     Dosage: 750-200 MG
     Route: 048
     Dates: start: 200208, end: 200705
  14. OLANZAPINE [Concomitant]
     Indication: BIPOLAR DISORDER
     Route: 048
     Dates: start: 200711, end: 200802

REACTIONS (9)
  - Exposure during pregnancy [Unknown]
  - Intracranial pressure increased [Not Recovered/Not Resolved]
  - Vitreous floaters [Not Recovered/Not Resolved]
  - Headache [Not Recovered/Not Resolved]
  - Oedema [Unknown]
  - Optic neuritis [Not Recovered/Not Resolved]
  - Papilloedema [Unknown]
  - Photopsia [Not Recovered/Not Resolved]
  - Vision blurred [Not Recovered/Not Resolved]
